FAERS Safety Report 9042561 (Version 1)
Quarter: 2013Q1

REPORT INFORMATION
  Report Type: Report from Study
  Country: US (occurrence: US)
  Receive Date: 20130129
  Receipt Date: 20130129
  Transmission Date: 20140127
  Serious: No
  Sender: FDA-Public Use
  Company Number: US-ABBOTT-12P-163-0905699-00

PATIENT
  Age: 57 Year
  Sex: Female

DRUGS (6)
  1. HUMIRA 40 MG/0.8 ML PEN [Suspect]
     Indication: RHEUMATOID ARTHRITIS
     Dates: start: 2008, end: 2010
  2. TRIAMTERENE HCTZ [Concomitant]
     Indication: BLOOD PRESSURE INCREASED
  3. METHOTREXATE [Concomitant]
     Indication: PRODUCT USED FOR UNKNOWN INDICATION
     Dosage: WEEKLY
     Dates: start: 2008
  4. PREDNISONE [Concomitant]
     Indication: PRODUCT USED FOR UNKNOWN INDICATION
     Dates: start: 2008
  5. CALCIUM [Concomitant]
     Indication: ILL-DEFINED DISORDER
  6. POTASSIUM [Concomitant]
     Indication: ILL-DEFINED DISORDER

REACTIONS (3)
  - Drug ineffective [Recovered/Resolved]
  - Local swelling [Unknown]
  - Joint stiffness [Unknown]
